FAERS Safety Report 6657365-X (Version None)
Quarter: 2010Q1

REPORT INFORMATION
  Report Type: 
  Country: None (occurrence: None)
  Receive Date: 20100330
  Receipt Date: 20100323
  Transmission Date: 20100710
  Serious: Yes (Other)
  Sender: FDA-Public Use
  Company Number: RO-SANOFI-AVENTIS-2010SA017237

PATIENT
  Age: 68 Year
  Sex: Female

DRUGS (1)
  1. LEFLUNOMIDE [Suspect]
     Indication: RHEUMATOID ARTHRITIS
     Route: 048
     Dates: start: 20050101

REACTIONS (3)
  - DIARRHOEA [None]
  - FATIGUE [None]
  - HEPATIC ENZYME INCREASED [None]
